FAERS Safety Report 12711633 (Version 1)
Quarter: 2016Q3

REPORT INFORMATION
  Report Type: Report from Study
  Country: US (occurrence: US)
  Receive Date: 20160902
  Receipt Date: 20160902
  Transmission Date: 20161109
  Serious: Yes (Hospitalization, Other)
  Sender: FDA-Public Use
  Company Number: US-ARIAD PHARMACEUTICALS, INC-2016US006278

PATIENT
  Age: 58 Year
  Sex: Male

DRUGS (4)
  1. ICLUSIG [Suspect]
     Active Substance: PONATINIB
     Dosage: UNK
     Route: 048
     Dates: start: 20160422, end: 20160514
  2. CYTOXAN [Suspect]
     Active Substance: CYCLOPHOSPHAMIDE
     Indication: ACUTE LYMPHOCYTIC LEUKAEMIA
     Dosage: UNK
  3. ICLUSIG [Suspect]
     Active Substance: PONATINIB
     Indication: ACUTE LYMPHOCYTIC LEUKAEMIA
     Dosage: 45 MG, QD
     Route: 048
     Dates: start: 20160303, end: 20160412
  4. ANTIBIOTICS [Concomitant]
     Active Substance: UNSPECIFIED INGREDIENT
     Indication: PRODUCT USED FOR UNKNOWN INDICATION
     Dosage: UNK
     Route: 042

REACTIONS (11)
  - Thrombocytopenia [Unknown]
  - Pyrexia [Recovered/Resolved]
  - Blood count abnormal [Recovered/Resolved]
  - Fatigue [Not Recovered/Not Resolved]
  - Staphylococcal infection [Unknown]
  - Sepsis [Unknown]
  - Hepatosplenic abscess [Unknown]
  - Subdural haematoma [Unknown]
  - Dyspnoea [Unknown]
  - Neutropenia [Unknown]
  - Headache [Not Recovered/Not Resolved]

NARRATIVE: CASE EVENT DATE: 20160309
